FAERS Safety Report 11891277 (Version 1)
Quarter: 2016Q1

REPORT INFORMATION
  Report Type: Spontaneous
  Country: US (occurrence: US)
  Receive Date: 20160106
  Receipt Date: 20160106
  Transmission Date: 20160526
  Serious: Yes (Hospitalization, Other)
  Sender: FDA-Public Use
  Company Number: US-BAYER-2016-000287

PATIENT
  Age: 53 Year
  Sex: Female

DRUGS (1)
  1. RID SHAMPOO [Suspect]
     Active Substance: PIPERONYL BUTOXIDE\PYRETHRIN I
     Indication: LICE INFESTATION
     Dosage: UNK
     Dates: start: 20151231

REACTIONS (9)
  - Ocular hyperaemia [None]
  - Eye irritation [None]
  - Chemical eye injury [None]
  - Corneal abrasion [None]
  - Eye disorder [None]
  - Corneal scar [None]
  - Visual impairment [None]
  - Corneal abrasion [None]
  - Vision blurred [None]

NARRATIVE: CASE EVENT DATE: 20151231
